FAERS Safety Report 4741714-3 (Version None)
Quarter: 2005Q3

REPORT INFORMATION
  Report Type: 
  Country: None (occurrence: None)
  Receive Date: 20050804
  Receipt Date: 20050331
  Transmission Date: 20060218
  Serious: No
  Sender: FDA-Public Use
  Company Number: WAES 0504USA00061

PATIENT
  Sex: Female

DRUGS (4)
  1. EMEND [Suspect]
     Indication: BREAST CANCER
     Dosage: 125 MG/DAILY/PO; 80 MG/DAILY/PO
     Route: 048
  2. EMEND [Suspect]
     Indication: BREAST CANCER
     Dosage: 125 MG/DAILY/PO; 80 MG/DAILY/PO
     Route: 048
  3. CYTOXAN [Concomitant]
  4. DOXORUBICIN [Concomitant]

REACTIONS (1)
  - NAUSEA [None]
